FAERS Safety Report 9437070 (Version 2)
Quarter: 2013Q3

REPORT INFORMATION
  Report Type: Spontaneous
  Country: US (occurrence: US)
  Receive Date: 20130802
  Receipt Date: 20130913
  Transmission Date: 20140515
  Serious: Yes (Hospitalization, Other)
  Sender: FDA-Public Use
  Company Number: US-PFIZER INC-2013221476

PATIENT
  Age: 55 Year
  Sex: Female
  Weight: 124.72 kg

DRUGS (2)
  1. REVATIO [Suspect]
     Indication: PULMONARY HYPERTENSION
     Dosage: 40 MG (2 TABLETS OF 20MG), 3X/DAY
     Route: 048
     Dates: start: 2008
  2. FUROSEMIDE [Concomitant]
     Dosage: UNK

REACTIONS (3)
  - Pulmonary thrombosis [Unknown]
  - Joint injury [Unknown]
  - International normalised ratio abnormal [Unknown]
